FAERS Safety Report 15847751 (Version 5)
Quarter: 2019Q4

REPORT INFORMATION
  Report Type: Report from Study
  Country: ES (occurrence: ES)
  Receive Date: 20190121
  Receipt Date: 20191016
  Transmission Date: 20200122
  Serious: Yes (Hospitalization)
  Sender: FDA-Public Use
  Company Number: ES-ROCHE-2212423

PATIENT
  Age: 65 Year
  Sex: Male
  Weight: 60.7 kg

DRUGS (18)
  1. ABSTRAL [Concomitant]
     Active Substance: FENTANYL CITRATE
     Indication: PAIN
     Route: 065
     Dates: start: 20180719
  2. CARBOPLATIN. [Suspect]
     Active Substance: CARBOPLATIN
     Indication: NON-SMALL CELL LUNG CANCER STAGE IV
     Dosage: DOSE OF LAST CARBOPLATIN ADMINISTERED: 360 MG ON 15 MAR 2017?TO ACHIEVE AN INITIAL TARGET AREA UNDER
     Route: 042
     Dates: start: 20161110
  3. PACLITAXEL. [Suspect]
     Active Substance: PACLITAXEL
     Indication: NON-SMALL CELL LUNG CANCER STAGE IV
     Dosage: DATE OF MOST RECENT DOSE 651 MG OF PACLITAXEL PRIOR TO AE ONSET: 15 MAR 2017?DAY 1 OF EACH 21-DAY CY
     Route: 042
     Dates: start: 20161110
  4. PARACETAMOL [Concomitant]
     Active Substance: ACETAMINOPHEN
     Indication: PYREXIA
     Route: 065
     Dates: start: 20161111
  5. AERO-RED [Concomitant]
     Indication: FLANK PAIN
     Route: 065
     Dates: start: 20171129
  6. TRAMADOL. [Concomitant]
     Active Substance: TRAMADOL
     Indication: TUMOUR PAIN
     Route: 065
     Dates: start: 20170104
  7. PRAVASTATIN. [Concomitant]
     Active Substance: PRAVASTATIN
     Indication: DYSLIPIDAEMIA
  8. PALEXIA [Concomitant]
     Active Substance: TAPENTADOL HYDROCHLORIDE
     Indication: PAIN
     Route: 065
     Dates: start: 20180404
  9. NOLOTIL [METAMIZOLE MAGNESIUM] [Concomitant]
     Active Substance: METAMIZOLE MAGNESIUM
     Indication: PAIN
     Route: 065
     Dates: start: 20180221
  10. ATEZOLIZUMAB. [Suspect]
     Active Substance: ATEZOLIZUMAB
     Indication: NON-SMALL CELL LUNG CANCER STAGE IV
     Dosage: DATE OF MOST RECENT DOSE OF ATEZOLIZUMAB PRIOR TO AE ONSET : 17/OCT/2018?DOSE OF LAST ATEZOLIZUMAB A
     Route: 042
     Dates: start: 20161110
  11. PARACETAMOL [Concomitant]
     Active Substance: ACETAMINOPHEN
     Indication: ARTHRALGIA
  12. PRIMPERAN [Concomitant]
     Active Substance: METOCLOPRAMIDE HYDROCHLORIDE
     Indication: NAUSEA
     Route: 065
     Dates: start: 20161110
  13. OMEPRAZOL [OMEPRAZOLE] [Concomitant]
     Active Substance: OMEPRAZOLE
     Indication: FLANK PAIN
     Route: 065
     Dates: start: 20171129
  14. DULOXETINA [DULOXETINE] [Concomitant]
     Active Substance: DULOXETINE
     Indication: ABDOMINAL PAIN
     Route: 065
     Dates: start: 20180822
  15. BEVACIZUMAB. [Suspect]
     Active Substance: BEVACIZUMAB
     Indication: NON-SMALL CELL LUNG CANCER STAGE IV
     Dosage: DATE OF MOST RECENT DOSE 1020 MG OF BEVACIZUMAB PRIOR TO AE ONSET: 17 OCT 2018
     Route: 042
     Dates: start: 20161110
  16. MORPHINE [Concomitant]
     Active Substance: MORPHINE
     Indication: ABDOMINAL PAIN
     Route: 065
     Dates: start: 20180822
  17. MIRTAZAPINE. [Concomitant]
     Active Substance: MIRTAZAPINE
     Indication: INSOMNIA
     Route: 065
     Dates: start: 20170111
  18. DEPRAX [TRAZODONE HYDROCHLORIDE] [Concomitant]
     Indication: ABDOMINAL PAIN
     Route: 065
     Dates: start: 20180822

REACTIONS (1)
  - Seizure [Not Recovered/Not Resolved]

NARRATIVE: CASE EVENT DATE: 20181106
